FAERS Safety Report 17284566 (Version 1)
Quarter: 2020Q1

REPORT INFORMATION
  Report Type: Spontaneous
  Country: US (occurrence: US)
  Receive Date: 20200117
  Receipt Date: 20200117
  Transmission Date: 20200409
  Serious: No
  Sender: FDA-Public Use
  Company Number: US-BAYER-2020-006491

PATIENT
  Age: 5 Decade
  Sex: Female

DRUGS (1)
  1. MENOSTAR [Suspect]
     Active Substance: ESTRADIOL
     Dosage: UNK
     Route: 062

REACTIONS (4)
  - Product physical issue [None]
  - Product adhesion issue [None]
  - Product colour issue [None]
  - Poor quality product administered [None]
